FAERS Safety Report 5635814-3 (Version None)
Quarter: 2008Q1

REPORT INFORMATION
  Report Type: 
  Country: None (occurrence: None)
  Receive Date: 20080221
  Receipt Date: 20080107
  Transmission Date: 20080703
  Serious: Yes (Hospitalization, Other)
  Sender: FDA-Public Use
  Company Number: 2008VX000046

PATIENT
  Age: 32 Year
  Sex: Female
  Weight: 58 kg

DRUGS (1)
  1. CHLORDIAZEPOXIDE HCL [Suspect]
     Dosage: 10 MG; QID
     Dates: start: 20071215, end: 20071215

REACTIONS (1)
  - VOMITING [None]
